FAERS Safety Report 19976629 (Version 1)
Quarter: 2021Q4

REPORT INFORMATION
  Report Type: Spontaneous
  Country: AU (occurrence: AU)
  Receive Date: 20211021
  Receipt Date: 20211021
  Transmission Date: 20220303
  Serious: Yes (Death, Hospitalization)
  Sender: FDA-Public Use
  Company Number: AU-NOVARTISPH-NVSC2019AU078570

PATIENT
  Age: 7 Year

DRUGS (1)
  1. KYMRIAH [Suspect]
     Active Substance: TISAGENLECLEUCEL
     Indication: Product used for unknown indication
     Dosage: UNK
     Route: 065
     Dates: start: 20191213

REACTIONS (3)
  - Acute lymphocytic leukaemia recurrent [Fatal]
  - Cytokine release syndrome [Recovered/Resolved]
  - Hypotension [Unknown]
